FAERS Safety Report 24447000 (Version 1)
Quarter: 2024Q4

REPORT INFORMATION
  Report Type: Spontaneous
  Country: BR (occurrence: BR)
  Receive Date: 20241016
  Receipt Date: 20241016
  Transmission Date: 20250115
  Serious: Yes (Other)
  Sender: PFIZER
  Company Number: BR-PFIZER INC-202400275341

PATIENT
  Sex: Male

DRUGS (3)
  1. LORAZEPAM [Suspect]
     Active Substance: LORAZEPAM
     Dosage: UNK
  2. ATENOLOL [Concomitant]
     Active Substance: ATENOLOL
     Dosage: UNK
  3. LOSARTAN POTASSIUM [Concomitant]
     Active Substance: LOSARTAN POTASSIUM
     Dosage: UNK

REACTIONS (2)
  - Cataract [Unknown]
  - Circumstance or information capable of leading to medication error [Unknown]
